FAERS Safety Report 7307979-9 (Version None)
Quarter: 2011Q1

REPORT INFORMATION
  Report Type: 
  Country: None (occurrence: None)
  Receive Date: 20110223
  Receipt Date: 20110217
  Transmission Date: 20110831
  Serious: Yes (Death)
  Sender: FDA-Public Use
  Company Number: JP-BAYER-200912803BYL

PATIENT
  Sex: Male
  Weight: 83.2 kg

DRUGS (23)
  1. SPIROPENT [Concomitant]
     Dosage: SINCE BEFORE NEXAVAR ADMINISTRATION
     Route: 048
     Dates: end: 20090707
  2. MELBIN [Concomitant]
     Dosage: SINCE BEFORE NEXAVAR ADMINISTRATION
     Route: 048
     Dates: end: 20090707
  3. TAMSULOSIN HCL [Concomitant]
     Dosage: SINCE BEFORE NEXAVAR ADMINISTRATION
     Route: 048
     Dates: end: 20090723
  4. DERMOVATE [Concomitant]
     Route: 062
     Dates: start: 20090531
  5. OXYCONTIN [Concomitant]
     Dosage: 10 MG (DAILY DOSE), , ORAL
     Route: 048
     Dates: start: 20090619, end: 20090723
  6. ZADITEN [Concomitant]
     Dosage: SINCE BEFORE NEXAVAR ADMINISTRATION
     Route: 048
     Dates: end: 20090707
  7. OMEPRAL [Concomitant]
     Dosage: SINCE BEFORE NEXAVAR ADMINISTRATION
     Route: 048
     Dates: end: 20090723
  8. BETAMETHASONE [Concomitant]
     Dosage: 2 MG (DAILY DOSE), , ORAL
     Route: 048
     Dates: start: 20090626, end: 20090707
  9. NEXAVAR [Suspect]
     Dosage: 800 MG (DAILY DOSE), , ORAL
     Route: 048
     Dates: start: 20090605, end: 20090707
  10. NEXAVAR [Suspect]
     Indication: HEPATIC NEOPLASM MALIGNANT
     Dosage: 400 MG (DAILY DOSE), BID, ORAL
     Route: 048
     Dates: start: 20090530, end: 20090605
  11. THEOLONG [Concomitant]
     Dosage: SINCE BEFORE NEXAVAR ADMINISTRATION
     Route: 048
     Dates: end: 20090707
  12. ACTOS [Concomitant]
     Dosage: SINCE BEFORE NEXAVAR ADMINISTRATION
     Route: 048
     Dates: end: 20090707
  13. METHYCOBAL [Concomitant]
     Dosage: SINCE BEFORE NEXAVAR ADMINISTRATION
     Route: 048
     Dates: end: 20090707
  14. LASIX [Concomitant]
     Dosage: SINCE BEFORE NEXAVAR ADMINISTRATION
     Route: 048
     Dates: end: 20090707
  15. ALDACTONE [Concomitant]
     Dosage: 25 MG (DAILY DOSE), , ORAL
     Route: 048
     Dates: start: 20090623, end: 20090722
  16. ALESION [Concomitant]
     Dosage: 20 MG (DAILY DOSE), , ORAL
     Route: 048
     Dates: start: 20090703, end: 20090722
  17. MORPHINE HYDROCHLORIDE [Concomitant]
     Dosage: 20 MG (DAILY DOSE), , INTRAVENOUS
     Route: 042
     Dates: start: 20090723, end: 20090801
  18. HIRUDOID [Concomitant]
     Route: 061
     Dates: start: 20090602
  19. MONILAC [Concomitant]
     Dosage: 30 ML (DAILY DOSE), , ORAL
     Route: 048
     Dates: start: 20090623, end: 20090722
  20. MAGLAX [Concomitant]
     Dosage: 1500 MG (DAILY DOSE), , ORAL
     Route: 048
     Dates: start: 20090623, end: 20090707
  21. GLYBURIDE [Concomitant]
     Dosage: SINCE BEFORE NEXAVAR ADMINISTRATION
     Route: 048
     Dates: end: 20090707
  22. ZYLORIC [Concomitant]
     Dosage: SINCE BEFORE NEXAVAR ADMINISTRATION
     Route: 048
     Dates: end: 20090707
  23. MIYA BM [Concomitant]
     Dosage: SINCE BEFORE NEXAVAR ADMINISTRATION
     Route: 048
     Dates: end: 20090707

REACTIONS (3)
  - HEPATIC FUNCTION ABNORMAL [None]
  - HEPATIC NEOPLASM MALIGNANT [None]
  - RASH [None]
